FAERS Safety Report 7418912-3 (Version None)
Quarter: 2011Q2

REPORT INFORMATION
  Report Type: 
  Country: None (occurrence: None)
  Receive Date: 20110415
  Receipt Date: 20110404
  Transmission Date: 20111010
  Serious: Yes (Death)
  Sender: FDA-Public Use
  Company Number: US-ELI_LILLY_AND_COMPANY-US201102004580

PATIENT
  Sex: Female

DRUGS (20)
  1. VALIUM [Concomitant]
     Dosage: 10 MG, UNK
  2. POTASSIUM GLUCONATE TAB [Concomitant]
     Route: 065
  3. ATARAX [Concomitant]
  4. LYRICA [Concomitant]
     Dosage: 200 MG, UNK
  5. REGLAN [Concomitant]
     Dosage: 10 MG, UNK
  6. PROVENTIL-HFA [Concomitant]
     Dosage: 90 UG, UNK
  7. RELAFEN [Concomitant]
     Dosage: 750 MG, UNK
  8. OXYCODONE HCL [Concomitant]
     Dosage: 15 MG, UNK
  9. HYDROCODONE BITARTRATE [Concomitant]
  10. ADVAIR DISKUS 100/50 [Concomitant]
  11. VITAMIN D [Concomitant]
     Dosage: 50000 U, UNK
  12. ELAVIL [Concomitant]
     Dosage: 75 MG, UNK
  13. LASIX [Concomitant]
     Dosage: 10 MG, UNK
  14. CYMBALTA [Suspect]
     Indication: FIBROMYALGIA
     Dosage: 60 MG, UNKNOWN
  15. SOMA [Concomitant]
     Dosage: 350 MG, UNK
  16. ALTABAX [Concomitant]
     Dosage: 1 %, UNK
  17. TOPAMAX [Concomitant]
     Dosage: 100 MG, UNK
  18. OPANA [Concomitant]
     Dosage: 20 MG, UNK
  19. DELTASONE [Concomitant]
     Dosage: 20 MG, UNK
  20. EFFEXOR [Concomitant]
     Dosage: 37.5 MG, UNK

REACTIONS (1)
  - DEATH [None]
